FAERS Safety Report 6497961-6 (Version None)
Quarter: 2009Q4

REPORT INFORMATION
  Report Type: 
  Country: None (occurrence: None)
  Receive Date: 20091215
  Receipt Date: 20091211
  Transmission Date: 20100525
  Serious: Yes (Death, Hospitalization)
  Sender: FDA-Public Use
  Company Number: GB-WYE-G04759309

PATIENT
  Sex: Female

DRUGS (17)
  1. GEMTUZUMAB OZOGAMICIN [Suspect]
     Indication: ACUTE MYELOID LEUKAEMIA
     Route: 042
     Dates: start: 20091014, end: 20091022
  2. CLOFARABINE [Suspect]
     Route: 042
     Dates: start: 20091014, end: 20091022
  3. DALTEPARIN SODIUM [Concomitant]
     Route: 058
  4. METFORMIN HCL [Concomitant]
     Route: 048
  5. DOXAZOSIN [Concomitant]
     Route: 048
  6. VALSARTAN [Concomitant]
     Route: 048
  7. ASPIRIN [Concomitant]
     Route: 048
  8. CHLORHEXIDINE GLUCONATE [Concomitant]
     Route: 048
  9. DIFFLAM [Concomitant]
     Route: 048
  10. ANUSOL [Concomitant]
     Dosage: SINGLE APPLICATION 4 TIMES DAILY
     Route: 061
  11. METOCLOPRAMIDE [Concomitant]
     Route: 048
  12. ONDANSETRON [Concomitant]
     Route: 048
  13. METRONIDAZOLE [Concomitant]
     Route: 048
  14. ACYCLOVIR [Concomitant]
     Route: 048
  15. CLOTRIMAZOLE [Concomitant]
     Dosage: 1 APPLICATION ONCE DAILY
     Route: 061
  16. ALLOPURINOL [Concomitant]
     Route: 048
  17. DAUNORUBICIN [Concomitant]
     Route: 042
     Dates: start: 20091014, end: 20091022

REACTIONS (5)
  - DIARRHOEA [None]
  - DISEASE PROGRESSION [None]
  - FLUID OVERLOAD [None]
  - NEUTROPENIC SEPSIS [None]
  - RENAL FAILURE [None]
